FAERS Safety Report 21779126 (Version 1)
Quarter: 2022Q4

REPORT INFORMATION
  Report Type: Report from Study
  Country: US (occurrence: US)
  Receive Date: 20221226
  Receipt Date: 20221226
  Transmission Date: 20230112
  Serious: No
  Sender: FDA-Public Use
  Company Number: US-ABBVIE-4214532

PATIENT
  Sex: Male

DRUGS (1)
  1. HUMIRA [Suspect]
     Active Substance: ADALIMUMAB
     Indication: Hidradenitis
     Dosage: FORM STRENGTH 40 MG, ONSET DATE FOR EVENT ALLERGIC TO HUMIRA WAS 2022.
     Route: 058
     Dates: start: 20220812, end: 202211

REACTIONS (1)
  - Drug hypersensitivity [Unknown]
